FAERS Safety Report 8603298-9 (Version None)
Quarter: 2012Q3

REPORT INFORMATION
  Report Type: 
  Country: None (occurrence: None)
  Receive Date: 20120817
  Receipt Date: 20120813
  Transmission Date: 20120928
  Serious: Yes (Death)
  Sender: FDA-Public Use
  Company Number: RU-UCBSA-063653

PATIENT
  Age: 49 Year
  Sex: Female

DRUGS (2)
  1. CIMZIA [Suspect]
     Indication: RHEUMATOID ARTHRITIS
     Dates: start: 20111027, end: 20120701
  2. METHOTREXATE [Concomitant]
     Dosage: 75 MG
     Route: 042

REACTIONS (1)
  - CARDIAC FAILURE CONGESTIVE [None]
